FAERS Safety Report 5732860-6 (Version None)
Quarter: 2008Q2

REPORT INFORMATION
  Report Type: 
  Country: None (occurrence: None)
  Receive Date: 20080507
  Receipt Date: 20080507
  Transmission Date: 20081010
  Serious: Yes (Death)
  Sender: FDA-Public Use
  Company Number: None

PATIENT
  Age: 42 Year
  Sex: Male
  Weight: 86.1834 kg

DRUGS (1)
  1. DIGITEK 0.125 MG BARTEK PHA [Suspect]
     Indication: ATRIAL FIBRILLATION
     Dosage: 2 IMMEDIAT, 1 IN MORN, 1 DAILY

REACTIONS (2)
  - CARDIOVERSION [None]
  - PHARMACEUTICAL PRODUCT COMPLAINT [None]
